FAERS Safety Report 5953730-4 (Version None)
Quarter: 2008Q4

REPORT INFORMATION
  Report Type: 
  Country: None (occurrence: None)
  Receive Date: 20081114
  Receipt Date: 20081107
  Transmission Date: 20090506
  Serious: Yes (Death, Life-Threatening, Hospitalization, Other)
  Sender: FDA-Public Use
  Company Number: GB-WYE-G02442208

PATIENT
  Sex: Female
  Weight: 65.8 kg

DRUGS (5)
  1. TORISEL [Suspect]
     Indication: RENAL CELL CARCINOMA
     Dosage: 1 DOSE EVERY 1 TOT
     Route: 042
     Dates: start: 20081016
  2. DOMPERIDONE [Concomitant]
     Indication: NAUSEA
     Dosage: 10-20MG 9DS; PRN
     Route: 048
  3. ORAMORPH SR [Concomitant]
     Indication: PAIN
     Dosage: 10MG/5ML PRN
     Route: 048
  4. WARFARIN SODIUM [Suspect]
     Indication: DEEP VEIN THROMBOSIS
     Dosage: VARYING DOSE
     Route: 048
     Dates: end: 20081012
  5. MORPHINE SULFATE INJ [Concomitant]
     Indication: PAIN
     Route: 048

REACTIONS (3)
  - DEATH [None]
  - SEPSIS [None]
  - SUBDURAL HAEMORRHAGE [None]
